FAERS Safety Report 7515365-1 (Version None)
Quarter: 2011Q2

REPORT INFORMATION
  Report Type: 
  Country: None (occurrence: None)
  Receive Date: 20110601
  Receipt Date: 20100613
  Transmission Date: 20111010
  Serious: No
  Sender: FDA-Public Use
  Company Number: US-PFIZER INC-2010074457

PATIENT
  Sex: Male
  Weight: 97.506 kg

DRUGS (1)
  1. CHANTIX [Suspect]
     Indication: SMOKING CESSATION THERAPY
     Dosage: UNK
     Route: 048
     Dates: start: 20100101

REACTIONS (2)
  - TOBACCO WITHDRAWAL SYMPTOMS [None]
  - IRRITABILITY [None]
